FAERS Safety Report 19697489 (Version 2)
Quarter: 2023Q4

REPORT INFORMATION
  Report Type: Spontaneous
  Country: IT (occurrence: IT)
  Receive Date: 20210813
  Receipt Date: 20231017
  Transmission Date: 20240109
  Serious: Yes (Other)
  Sender: FDA-Public Use
  Company Number: IT-SA-SAC20210810000583

PATIENT
  Age: 76 Year
  Sex: Female

DRUGS (2)
  1. IRBESARTAN [Suspect]
     Active Substance: IRBESARTAN
     Dosage: UNK
     Dates: start: 2003
  2. IRBESARTAN [Suspect]
     Active Substance: IRBESARTAN
     Dosage: UNK

REACTIONS (2)
  - Haemorrhage [Unknown]
  - Vein rupture [Unknown]

NARRATIVE: CASE EVENT DATE: 20210722
